FAERS Safety Report 17839485 (Version 1)
Quarter: 2020Q2

REPORT INFORMATION
  Report Type: Spontaneous
  Country: US (occurrence: US)
  Receive Date: 20200529
  Receipt Date: 20200529
  Transmission Date: 20200714
  Serious: No
  Sender: FDA-Public Use
  Company Number: US-009507513-2005USA009264

PATIENT
  Age: 50 Year
  Sex: Female

DRUGS (1)
  1. ALBUTEROL SULFATE. [Suspect]
     Active Substance: ALBUTEROL SULFATE
     Dosage: 2 PUFFS BY MOUTH EVERY 4 HOURS AS NEEDED
     Dates: start: 20200505, end: 20200506

REACTIONS (4)
  - Product dose omission [Not Recovered/Not Resolved]
  - Poor quality device used [Unknown]
  - Product quality issue [Unknown]
  - Incorrect dose administered [Unknown]

NARRATIVE: CASE EVENT DATE: 202005
